FAERS Safety Report 7769326-8 (Version None)
Quarter: 2011Q3

REPORT INFORMATION
  Report Type: 
  Country: None (occurrence: None)
  Receive Date: 20110922
  Receipt Date: 20110919
  Transmission Date: 20111222
  Serious: Yes (Death, Other)
  Sender: FDA-Public Use
  Company Number: DE-ROCHE-801471

PATIENT
  Sex: Female
  Weight: 63 kg

DRUGS (3)
  1. AROMASIN [Concomitant]
     Indication: BREAST CANCER
     Dates: start: 20110501, end: 20110801
  2. IBUPROFEN [Concomitant]
     Indication: PAIN
     Dates: start: 20110501, end: 20110907
  3. XELODA [Suspect]
     Dosage: 6 TABLETS, FREQUENCY:1X
     Route: 048
     Dates: start: 20110905, end: 20110906

REACTIONS (2)
  - HAEMOLYTIC ANAEMIA [None]
  - HAEMOLYSIS [None]
